FAERS Safety Report 15143400 (Version 1)
Quarter: 2018Q3

REPORT INFORMATION
  Report Type: Spontaneous
  Country: US (occurrence: US)
  Receive Date: 20180713
  Receipt Date: 20180713
  Transmission Date: 20181010
  Serious: No
  Sender: FDA-Public Use
  Company Number: US-PERRIGO-17US027325

PATIENT
  Age: 48 Year
  Sex: Male
  Weight: 85.26 kg

DRUGS (5)
  1. CHILDRENS CETIRIZINE HYDROCHLORIDE ALLERGY [Suspect]
     Active Substance: CETIRIZINE HYDROCHLORIDE
     Indication: OFF LABEL USE
     Dosage: 2.5 MG, SINGLE
     Route: 048
     Dates: start: 20170925, end: 20170925
  2. SERTRALINE [Concomitant]
     Active Substance: SERTRALINE HYDROCHLORIDE
     Indication: ANXIETY
     Dosage: UNKNOWN, UNKNOWN
     Route: 065
     Dates: start: 2012
  3. SERTRALINE [Concomitant]
     Active Substance: SERTRALINE HYDROCHLORIDE
     Indication: DEPRESSION
  4. CHILDRENS CETIRIZINE HYDROCHLORIDE ALLERGY [Suspect]
     Active Substance: CETIRIZINE HYDROCHLORIDE
     Dosage: 2.5 MG, SINGLE
     Route: 048
     Dates: start: 20171001, end: 20171001
  5. NUVIGIL [Concomitant]
     Active Substance: ARMODAFINIL
     Indication: SLEEP APNOEA SYNDROME
     Dosage: UNKNOWN, UNKNOWN
     Route: 065
     Dates: start: 2016

REACTIONS (1)
  - Dysgeusia [Recovered/Resolved]

NARRATIVE: CASE EVENT DATE: 20170925
